FAERS Safety Report 22341658 (Version 1)
Quarter: 2023Q2

REPORT INFORMATION
  Report Type: Spontaneous
  Country: US (occurrence: US)
  Receive Date: 20230518
  Receipt Date: 20230518
  Transmission Date: 20230722
  Serious: No
  Sender: FDA-Public Use
  Company Number: US-GALDERMA-US2023004838

PATIENT

DRUGS (5)
  1. PROACTIV MD ADAPALENE ACNE TREATMENT [Suspect]
     Active Substance: ADAPALENE
     Indication: Skin discolouration
     Dosage: 1 DOSAGE FORM
     Route: 061
  2. Proactiv MD Ultra Gentle Cleanser [Concomitant]
     Indication: Skin discolouration
     Dosage: 1 DOSAGE FORM
     Route: 061
  3. Proactiv MD Ultra Hydrating Moisturizer [Concomitant]
     Indication: Skin discolouration
     Dosage: 1 DOSAGE FORM
     Route: 061
  4. Proactiv Post Acne Dark Mark Relief [Concomitant]
     Indication: Skin discolouration
     Dosage: 1 DOSAGE FORM
     Route: 061
  5. Proactiv Post Acne Scar Gel [Concomitant]
     Indication: Skin discolouration
     Dosage: 1 DOSAGE FORM
     Route: 061

REACTIONS (3)
  - Exposure during pregnancy [Recovered/Resolved]
  - Product use in unapproved indication [Recovered/Resolved]
  - Inappropriate schedule of product administration [Recovered/Resolved]
